FAERS Safety Report 4531019-8 (Version None)
Quarter: 2004Q4

REPORT INFORMATION
  Report Type: 
  Country: None (occurrence: None)
  Receive Date: 20041202
  Receipt Date: 20041013
  Transmission Date: 20050328
  Serious: No
  Sender: FDA-Public Use
  Company Number: 200420831BWH

PATIENT
  Age: 73 Year
  Sex: Male
  Weight: 74.3899 kg

DRUGS (3)
  1. LEVITRA [Suspect]
     Indication: ERECTILE DYSFUNCTION
     Dosage: 10 MG, PRN, ORAL
     Route: 048
     Dates: start: 20040901
  2. LEVITRA [Suspect]
     Indication: ERECTILE DYSFUNCTION
     Dosage: 10 MG, PRN, ORAL
     Route: 048
     Dates: start: 20041011
  3. ZETIA [Concomitant]

REACTIONS (2)
  - FEELING HOT [None]
  - MUSCULOSKELETAL DISCOMFORT [None]
